FAERS Safety Report 4538233-6 (Version None)
Quarter: 2004Q4

REPORT INFORMATION
  Report Type: 
  Country: None (occurrence: None)
  Receive Date: 20041227
  Receipt Date: 20041215
  Transmission Date: 20050328
  Serious: Yes (Other)
  Sender: FDA-Public Use
  Company Number: US-JNJFOC-20041205159

PATIENT
  Sex: Female

DRUGS (11)
  1. INFLIXIMAB [Suspect]
     Indication: RHEUMATOID ARTHRITIS
     Route: 042
  2. CALTRATE [Concomitant]
  3. COREG [Concomitant]
  4. DYAZIDE [Concomitant]
  5. DYAZIDE [Concomitant]
  6. HYDROCODONE [Concomitant]
  7. PREDNISONE TAB [Concomitant]
  8. PREMARIN [Concomitant]
  9. PRINIVIL [Concomitant]
  10. THYROID TAB [Concomitant]
  11. ACTONEL [Concomitant]

REACTIONS (1)
  - BASAL CELL CARCINOMA [None]
